FAERS Safety Report 7483224-9 (Version None)
Quarter: 2011Q2

REPORT INFORMATION
  Report Type: 
  Country: None (occurrence: None)
  Receive Date: 20110516
  Receipt Date: 20110512
  Transmission Date: 20111010
  Serious: Yes (Other)
  Sender: FDA-Public Use
  Company Number: PHHO2011DE03762

PATIENT
  Sex: Male

DRUGS (4)
  1. TACROLIMUS [Suspect]
     Indication: LIVER TRANSPLANT
     Dosage: UNK
     Route: 048
     Dates: start: 20091216
  2. EVEROLIMUS [Suspect]
     Dosage: UNK
     Route: 048
     Dates: start: 20100214, end: 20100429
  3. EVEROLIMUS [Suspect]
     Indication: LIVER TRANSPLANT
     Dosage: UNK
     Route: 048
     Dates: start: 20100111, end: 20100125
  4. EVEROLIMUS [Suspect]
     Dosage: UNK
     Route: 048
     Dates: start: 20100518, end: 20100606

REACTIONS (2)
  - PORTAL HYPERTENSION [None]
  - LIVER INJURY [None]
